FAERS Safety Report 8160347-2 (Version None)
Quarter: 2012Q1

REPORT INFORMATION
  Report Type: 
  Country: None (occurrence: None)
  Receive Date: 20120223
  Receipt Date: 20120217
  Transmission Date: 20120608
  Serious: Yes (Disabling, Other)
  Sender: FDA-Public Use
  Company Number: CA-ABBOTT-12P-028-0906485-00

PATIENT
  Age: 40 Year
  Sex: Female

DRUGS (1)
  1. BIAXIN XL [Suspect]
     Indication: PNEUMONIA
     Route: 048
     Dates: start: 20100101

REACTIONS (1)
  - OTOTOXICITY [None]
